FAERS Safety Report 12582156 (Version 1)
Quarter: 2016Q3

REPORT INFORMATION
  Report Type: Spontaneous
  Country: JP (occurrence: JP)
  Receive Date: 20160722
  Receipt Date: 20160722
  Transmission Date: 20161109
  Serious: Yes (Hospitalization)
  Sender: FDA-Public Use
  Company Number: JP-PFIZER INC-2016338715

PATIENT
  Age: 30 Year
  Sex: Male

DRUGS (1)
  1. SALAZOPYRIN 500MG [Suspect]
     Active Substance: SULFASALAZINE
     Route: 048

REACTIONS (6)
  - Swelling [Unknown]
  - Measles [None]
  - Drug eruption [Not Recovered/Not Resolved]
  - Generalised erythema [Unknown]
  - Pyrexia [Unknown]
  - Streptococcal infection [None]
